FAERS Safety Report 19921076 (Version 1)
Quarter: 2021Q4

REPORT INFORMATION
  Report Type: Report from Study
  Country: US (occurrence: US)
  Receive Date: 20211005
  Receipt Date: 20211005
  Transmission Date: 20220303
  Serious: Yes (Hospitalization)
  Sender: FDA-Public Use
  Company Number: US-EISAI MEDICAL RESEARCH-EC-2021-100291

PATIENT
  Age: 51 Year
  Sex: Male
  Weight: 58.79 kg

DRUGS (1)
  1. LENVIMA [Suspect]
     Active Substance: LENVATINIB
     Indication: Hepatocellular carcinoma
     Route: 048
     Dates: start: 20210916, end: 202109

REACTIONS (10)
  - Blood pressure increased [Unknown]
  - White blood cell count increased [Unknown]
  - Dehydration [Unknown]
  - Blood sodium decreased [Unknown]
  - Abdominal pain upper [Unknown]
  - Asthenia [Unknown]
  - Decreased appetite [Unknown]
  - Headache [Unknown]
  - Dysphonia [Unknown]
  - Body temperature increased [Unknown]

NARRATIVE: CASE EVENT DATE: 20210901
